FAERS Safety Report 10110852 (Version 1)
Quarter: 2014Q2

REPORT INFORMATION
  Report Type: Spontaneous
  Country: FR (occurrence: FR)
  Receive Date: 20140425
  Receipt Date: 20140425
  Transmission Date: 20141212
  Serious: Yes (Other)
  Sender: FDA-Public Use
  Company Number: FR-JNJFOC-20140411573

PATIENT
  Age: 78 Year
  Sex: Male

DRUGS (1)
  1. DOXORUBICIN HYDROCHLORIDE (CAELYX) [Suspect]
     Indication: PRODUCT USED FOR UNKNOWN INDICATION
     Route: 042
     Dates: start: 20130725

REACTIONS (1)
  - Toxic skin eruption [Recovered/Resolved]
